FAERS Safety Report 5587317-2 (Version None)
Quarter: 2008Q1

REPORT INFORMATION
  Report Type: 
  Country: None (occurrence: None)
  Receive Date: 20080110
  Receipt Date: 20080104
  Transmission Date: 20080703
  Serious: Yes (Other)
  Sender: FDA-Public Use
  Company Number: US-ELI_LILLY_AND_COMPANY-2006PV012020

PATIENT
  Sex: Female
  Weight: 77.11 kg

DRUGS (15)
  1. EXENATIDE [Suspect]
     Dosage: 5 UG, 2/D
     Route: 058
     Dates: start: 20060301, end: 20060417
  2. EXENATIDE [Suspect]
     Dosage: 5 UG, 2/D
     Route: 058
     Dates: start: 20070601
  3. METFORMIN HCL [Concomitant]
     Dosage: 1000 MG, 2/D
     Route: 048
     Dates: start: 20060216
  4. AVANDAMET [Concomitant]
     Dosage: UNK, UNK
     Dates: end: 20060216
  5. LIPITOR [Concomitant]
     Indication: BLOOD CHOLESTEROL INCREASED
     Dosage: 10 MG, EACH EVENING
     Route: 048
     Dates: start: 20040101
  6. ZETIA [Concomitant]
     Indication: BLOOD CHOLESTEROL INCREASED
     Dosage: 10 MG, EACH EVENING
     Route: 048
     Dates: start: 20050101
  7. PREMPRO [Concomitant]
     Indication: HORMONE REPLACEMENT THERAPY
     Dosage: 1.5 MG, DAILY (1/D)
     Route: 048
     Dates: start: 20051201
  8. ASPIRIN [Concomitant]
     Dosage: 81 MG, DAILY (1/D)
     Route: 048
     Dates: start: 20030101
  9. CLONIDINE [Concomitant]
     Indication: HYPERTENSION
     Dosage: 0.1 MG, 2/D
     Route: 048
     Dates: start: 19980101
  10. FOLBIC [Concomitant]
     Indication: BLOOD HOMOCYSTEINE INCREASED
     Dosage: 1 UNK, 2/D
     Route: 048
     Dates: start: 20040101
  11. ZESTORETIC [Concomitant]
     Indication: BLOOD PRESSURE INCREASED
     Dosage: 2 D/F, DAILY (1/D)
     Route: 048
     Dates: start: 19980101
  12. CENTRUM SILVER                     /01292501/ [Concomitant]
     Dosage: 1 UNK, DAILY (1/D)
     Route: 048
     Dates: start: 20040101
  13. OMEGA 3 [Concomitant]
     Dosage: 3 UNK, EACH EVENING
     Route: 048
     Dates: start: 20040101
  14. PRANDIN /USA/ [Concomitant]
     Indication: DIABETES MELLITUS
  15. PERCOCET [Concomitant]

REACTIONS (5)
  - BLOOD GLUCOSE INCREASED [None]
  - DECREASED APPETITE [None]
  - INJECTION SITE RASH [None]
  - PANCREATITIS [None]
  - WEIGHT DECREASED [None]
